FAERS Safety Report 19481072 (Version 1)
Quarter: 2021Q2

REPORT INFORMATION
  Report Type: Spontaneous
  Country: US (occurrence: US)
  Receive Date: 20210630
  Receipt Date: 20210630
  Transmission Date: 20210717
  Serious: Yes (Other)
  Sender: FDA-Public Use
  Company Number: None

PATIENT
  Age: 64 Year
  Sex: Female
  Weight: 63.5 kg

DRUGS (9)
  1. BENADRL [Concomitant]
  2. OVERCOUTER SLEEPING [Concomitant]
  3. FISH OIL [Concomitant]
     Active Substance: FISH OIL
  4. TRACE MINERALS [Concomitant]
     Active Substance: MINERALS
  5. NP THYROID [Suspect]
     Active Substance: LEVOTHYROXINE\LIOTHYRONINE
  6. NP THYROID [Suspect]
     Active Substance: LEVOTHYROXINE\LIOTHYRONINE
     Dosage: ?          QUANTITY:1 DF DOSAGE FORM;?
     Route: 048
     Dates: start: 2020
  7. MULLEEN [Concomitant]
  8. TRAZODONE [Concomitant]
     Active Substance: TRAZODONE HYDROCHLORIDE
  9. MULTI VIT [Concomitant]
     Active Substance: VITAMINS

REACTIONS (3)
  - Incorrect dose administered [None]
  - Intentional product use issue [None]
  - Product substitution issue [None]

NARRATIVE: CASE EVENT DATE: 2020
